FAERS Safety Report 5715966-7 (Version None)
Quarter: 2008Q2

REPORT INFORMATION
  Report Type: 
  Country: None (occurrence: None)
  Receive Date: 20080424
  Receipt Date: 20080418
  Transmission Date: 20081010
  Serious: Yes (Hospitalization)
  Sender: FDA-Public Use
  Company Number: DE-ASTRAZENECA-2008PK00825

PATIENT
  Age: 20 Year
  Sex: Male

DRUGS (9)
  1. SEROQUEL [Interacting]
     Route: 048
     Dates: start: 20060512, end: 20060512
  2. SEROQUEL [Interacting]
     Route: 048
     Dates: start: 20060513, end: 20060516
  3. SEROQUEL [Interacting]
     Route: 048
     Dates: start: 20060517, end: 20060517
  4. SEROQUEL [Interacting]
     Route: 048
     Dates: start: 20060523
  5. SOLIAN [Suspect]
     Route: 048
     Dates: start: 20060515, end: 20060515
  6. SOLIAN [Suspect]
     Route: 048
     Dates: start: 20060516, end: 20060516
  7. SOLIAN [Suspect]
     Route: 048
     Dates: start: 20060517, end: 20060518
  8. SOLIAN [Suspect]
     Route: 048
     Dates: start: 20060519, end: 20060519
  9. SOLIAN [Suspect]
     Route: 048
     Dates: start: 20060521

REACTIONS (3)
  - DRUG INTERACTION [None]
  - DYSTONIA [None]
  - PLEUROTHOTONUS [None]
